FAERS Safety Report 10143787 (Version 3)
Quarter: 2014Q3

REPORT INFORMATION
  Report Type: Spontaneous
  Country: US (occurrence: US)
  Receive Date: 20140430
  Receipt Date: 20140805
  Transmission Date: 20150326
  Serious: Yes (Other)
  Sender: FDA-Public Use
  Company Number: US-GLAXOSMITHKLINE-A1070623A

PATIENT
  Age: 59 Year
  Sex: Female

DRUGS (14)
  1. BABY ASPIRIN [Concomitant]
     Active Substance: ASPIRIN
  2. CALTRATE [Concomitant]
     Active Substance: CALCIUM CARBONATE
  3. FLUTICASONE [Concomitant]
     Active Substance: FLUTICASONE\FLUTICASONE PROPIONATE
     Dosage: 2SPR PER DAY
  4. PROAIR HFA [Concomitant]
     Active Substance: ALBUTEROL SULFATE
  5. LORATADINE. [Concomitant]
     Active Substance: LORATADINE
  6. ADVAIR HFA [Suspect]
     Active Substance: FLUTICASONE PROPIONATE\SALMETEROL XINAFOATE
     Indication: ASTHMA
     Dosage: 1PUFF TWICE PER DAY
     Route: 055
     Dates: start: 2002, end: 201312
  7. SPIRIVA [Concomitant]
     Active Substance: TIOTROPIUM BROMIDE MONOHYDRATE
  8. ATENOLOL. [Concomitant]
     Active Substance: ATENOLOL
  9. CENTRUM [Concomitant]
     Active Substance: VITAMINS
  10. ALVESCO [Concomitant]
     Active Substance: CICLESONIDE
     Dosage: 3PUFF PER DAY
  11. HCTZ [Concomitant]
     Active Substance: HYDROCHLOROTHIAZIDE
  12. NEXIUM [Concomitant]
     Active Substance: ESOMEPRAZOLE MAGNESIUM
  13. SIMVASTATIN. [Concomitant]
     Active Substance: SIMVASTATIN
  14. VICKS VAPOSTEAM [Concomitant]
     Active Substance: CAMPHOR

REACTIONS (10)
  - Malignant melanoma [Unknown]
  - Larynx irritation [Unknown]
  - Cough [Recovered/Resolved]
  - Pollakiuria [Recovered/Resolved]
  - Choking [Recovered/Resolved]
  - Fatigue [Recovered/Resolved]
  - Aspiration [Recovered/Resolved]
  - Myocardial infarction [Recovered/Resolved]
  - Throat tightness [Recovered/Resolved]
  - Vocal cord disorder [Unknown]

NARRATIVE: CASE EVENT DATE: 2003
